FAERS Safety Report 5328760-6 (Version None)
Quarter: 2007Q2

REPORT INFORMATION
  Report Type: 
  Country: None (occurrence: None)
  Receive Date: 20070516
  Receipt Date: 20070516
  Transmission Date: 20071010
  Serious: Yes (Hospitalization)
  Sender: FDA-Public Use
  Company Number: None

PATIENT
  Age: 56 Year
  Sex: Female
  Weight: 65.7 kg

DRUGS (2)
  1. TIGECYCLINE 50 MG WYETH PHARMACEUTICALS [Suspect]
     Indication: INTRASPINAL ABSCESS
     Dosage: 50 MG 12 HOURS IV BOLUS
     Route: 040
     Dates: start: 20070322, end: 20070327
  2. TIGECYCLINE 50 MG WYETH PHARMACEUTICALS [Suspect]
     Indication: OSTEOMYELITIS
     Dosage: 50 MG 12 HOURS IV BOLUS
     Route: 040
     Dates: start: 20070322, end: 20070327

REACTIONS (1)
  - PANCREATITIS [None]
